FAERS Safety Report 25690840 (Version 1)
Quarter: 2025Q3

REPORT INFORMATION
  Report Type: Spontaneous
  Country: GB (occurrence: GB)
  Receive Date: 20250818
  Receipt Date: 20250818
  Transmission Date: 20251021
  Serious: Yes (Other)
  Sender: PFIZER
  Company Number: None

PATIENT
  Age: 18 Year
  Sex: Female
  Weight: 26 kg

DRUGS (8)
  1. DOXYCYCLINE [Suspect]
     Active Substance: DOXYCYCLINE
     Indication: Sexually transmitted disease
  2. DOXYCYCLINE [Suspect]
     Active Substance: DOXYCYCLINE
     Dosage: 1 DF, 1X/DAY (ONE TO BE TAKEN EACH DAY)
  3. FLUCONAZOLE [Concomitant]
     Active Substance: FLUCONAZOLE
     Dates: start: 20250801
  4. DOXYCYCLINE [Concomitant]
     Active Substance: DOXYCYCLINE
     Dosage: 1 DF, 2X/DAY (ONE TO BE TAKEN TWICE A DAY)
     Dates: start: 20250806
  5. PENICILLIN V [Concomitant]
     Active Substance: PENICILLIN V
     Indication: Sickle cell anaemia
     Dosage: 1 DF, 2X/DAY (ONE TWICE DAILY)
     Dates: start: 20250812
  6. LORATADINE [Concomitant]
     Active Substance: LORATADINE
     Dosage: 1 DF, 1X/DAY (ONE TO BE TAKEN EACH DAY)
     Dates: start: 20250813
  7. FEXOFENADINE [Concomitant]
     Active Substance: FEXOFENADINE HYDROCHLORIDE
     Dosage: 1 DF, 1X/DAY (ONE TO BE TAKEN EACH DAY)
     Dates: start: 20250813
  8. PREDNISOLONE [Concomitant]
     Active Substance: PREDNISOLONE
     Dosage: 6 DF, 1X/DAY (TAKE SIX TABLETS ONCE A DAY)
     Dates: start: 20250813

REACTIONS (1)
  - Swelling face [Unknown]

NARRATIVE: CASE EVENT DATE: 20250806
